FAERS Safety Report 8591341-5 (Version None)
Quarter: 2012Q3

REPORT INFORMATION
  Report Type: 
  Country: None (occurrence: None)
  Receive Date: 20120724
  Receipt Date: 20120712
  Transmission Date: 20120928
  Serious: Yes (Death, Other)
  Sender: FDA-Public Use
  Company Number: 2012PROUSA01432

PATIENT
  Age: 71 Year
  Sex: Male
  Weight: 62.6 kg

DRUGS (8)
  1. PROVENGE [Suspect]
     Indication: PROSTATE CANCER METASTATIC
     Dosage: 250 ML, SINGLE, INTRAVENOUS
     Route: 042
     Dates: start: 20110825, end: 20110825
  2. PROVENGE [Suspect]
     Indication: PROSTATE CANCER METASTATIC
     Dosage: 250 ML, SINGLE, INTRAVENOUS
     Route: 042
     Dates: start: 20110728, end: 20110728
  3. PROVENGE [Suspect]
     Indication: PROSTATE CANCER METASTATIC
     Dosage: 250 ML, SINGLE, INTRAVENOUS
     Route: 042
     Dates: start: 20110811, end: 20110811
  4. SIMVASTATIN [Concomitant]
  5. PROVENGE [Suspect]
  6. INSULIN REGULAR (INSULIN PORCINE) [Concomitant]
  7. PROVENGE [Suspect]
  8. LEVEMIR [Concomitant]

REACTIONS (3)
  - RENAL FAILURE [None]
  - NEOPLASM PROGRESSION [None]
  - PROSTATE CANCER METASTATIC [None]
